FAERS Safety Report 8894007 (Version 2)
Quarter: 2013Q3

REPORT INFORMATION
  Report Type: Spontaneous
  Country: US (occurrence: US)
  Receive Date: 20121108
  Receipt Date: 20130919
  Transmission Date: 20140515
  Serious: No
  Sender: FDA-Public Use
  Company Number: US-BAYER-2012-117006

PATIENT
  Age: 83 Year
  Sex: Male

DRUGS (6)
  1. AVELOX [Suspect]
     Indication: PNEUMONIA
     Dosage: 400 MG, QD
     Route: 048
     Dates: start: 20121003, end: 20121012
  2. LISINOPRIL [Concomitant]
     Dosage: UNK MG, UNK
  3. HYDROCHLOROTHIAZIDE [Concomitant]
     Dosage: UNK MG, UNK
  4. TERAZOSIN [Concomitant]
     Dosage: UNK MG, UNK
  5. SIMVASTATIN [Concomitant]
     Dosage: UNK MG, UNK
  6. XALATAN [Concomitant]
     Dosage: UNK

REACTIONS (1)
  - Ephelides [Not Recovered/Not Resolved]
